FAERS Safety Report 20623175 (Version 1)
Quarter: 2022Q1

REPORT INFORMATION
  Report Type: Spontaneous
  Country: US (occurrence: US)
  Receive Date: 20220322
  Receipt Date: 20220322
  Transmission Date: 20220423
  Serious: No
  Sender: FDA-Public Use
  Company Number: US-ALLERGAN-2205636US

PATIENT
  Sex: Female

DRUGS (2)
  1. LATISSE [Suspect]
     Active Substance: BIMATOPROST
     Indication: Growth of eyelashes
     Dosage: UNK, QD
  2. LATISSE [Suspect]
     Active Substance: BIMATOPROST
     Dosage: UNK, QD

REACTIONS (2)
  - Expired product administered [Unknown]
  - Drug ineffective [Unknown]
